FAERS Safety Report 16002020 (Version 1)
Quarter: 2019Q1

REPORT INFORMATION
  Report Type: Spontaneous
  Country: GB (occurrence: GB)
  Receive Date: 20190225
  Receipt Date: 20190225
  Transmission Date: 20190418
  Serious: Yes (Other)
  Sender: FDA-Public Use
  Company Number: GB-PFIZER INC-2019074575

PATIENT
  Age: 43 Year
  Sex: Female
  Weight: 64 kg

DRUGS (4)
  1. LYRICA [Suspect]
     Active Substance: PREGABALIN
     Indication: NERVE INJURY
     Dosage: 450 MG, 1X/DAY
     Route: 048
     Dates: start: 20170301, end: 20190107
  2. SERTRALINE HCL [Suspect]
     Active Substance: SERTRALINE HYDROCHLORIDE
     Dosage: UNK
     Dates: start: 201710
  3. FLUOXETINE [Concomitant]
     Active Substance: FLUOXETINE HYDROCHLORIDE
     Indication: MENTAL IMPAIRMENT
     Dosage: UNK
  4. AMITRIPTYLINE [Concomitant]
     Active Substance: AMITRIPTYLINE
     Dosage: UNK

REACTIONS (20)
  - Chest discomfort [Unknown]
  - Sinus pain [Recovering/Resolving]
  - Metrorrhagia [Not Recovered/Not Resolved]
  - Headache [Recovering/Resolving]
  - Pain in extremity [Unknown]
  - Muscle spasms [Unknown]
  - Constipation [Not Recovered/Not Resolved]
  - Anaphylactic reaction [Recovering/Resolving]
  - Epistaxis [Recovered/Resolved]
  - Influenza [Not Recovered/Not Resolved]
  - Palpitations [Recovered/Resolved]
  - Hyperhidrosis [Not Recovered/Not Resolved]
  - Muscle spasms [Not Recovered/Not Resolved]
  - Pharyngeal oedema [Recovering/Resolving]
  - Insomnia [Not Recovered/Not Resolved]
  - Vertigo [Recovering/Resolving]
  - Tremor [Not Recovered/Not Resolved]
  - Tinnitus [Recovered/Resolved]
  - Drug interaction [Unknown]
  - Otitis media [Not Recovered/Not Resolved]

NARRATIVE: CASE EVENT DATE: 20170401
